FAERS Safety Report 5747894-5 (Version None)
Quarter: 2008Q2

REPORT INFORMATION
  Report Type: 
  Country: None (occurrence: None)
  Receive Date: 20080523
  Receipt Date: 20080521
  Transmission Date: 20081010
  Serious: Yes (Other)
  Sender: FDA-Public Use
  Company Number: US-ALLERGAN-0805763US

PATIENT
  Sex: Female

DRUGS (2)
  1. BOTOX COSMETIC [Suspect]
     Indication: SKIN WRINKLING
     Dosage: UNK, SINGLE
     Route: 030
     Dates: start: 20080512, end: 20080512
  2. JUVEDERM [Concomitant]
     Indication: SKIN WRINKLING
     Dosage: UNK, SINGLE
     Route: 023
     Dates: start: 20080512, end: 20080512

REACTIONS (2)
  - LOSS OF CONSCIOUSNESS [None]
  - VOMITING [None]
